FAERS Safety Report 19592970 (Version 1)
Quarter: 2021Q3

REPORT INFORMATION
  Report Type: Spontaneous
  Country: AU (occurrence: AU)
  Receive Date: 20210722
  Receipt Date: 20210722
  Transmission Date: 20211014
  Serious: Yes (Life-Threatening, Hospitalization, Disabling, Other)
  Sender: FDA-Public Use
  Company Number: None

PATIENT
  Age: 34 Year
  Sex: Female
  Weight: 70 kg

DRUGS (1)
  1. ELEUPHRAT [Suspect]
     Active Substance: BETAMETHASONE DIPROPIONATE
     Indication: PRODUCT USED FOR UNKNOWN INDICATION

REACTIONS (12)
  - Insomnia [None]
  - Skin burning sensation [None]
  - Anxiety [None]
  - Suicidal ideation [None]
  - Drug ineffective [None]
  - Pain [None]
  - Condition aggravated [None]
  - Skin exfoliation [None]
  - Weight decreased [None]
  - Erythema [None]
  - Oedema [None]
  - Alopecia [None]

NARRATIVE: CASE EVENT DATE: 20160601
